FAERS Safety Report 13271829 (Version 2)
Quarter: 2018Q2

REPORT INFORMATION
  Report Type: Report from Study
  Country: None (occurrence: NL)
  Receive Date: 20170227
  Receipt Date: 20180507
  Transmission Date: 20180711
  Serious: Yes (Hospitalization)
  Sender: FDA-Public Use
  Company Number: NL-ABBVIE-17K-114-1865556-00

PATIENT
  Sex: Male

DRUGS (3)
  1. DUODOPA [Suspect]
     Active Substance: CARBIDOPA\LEVODOPA
     Dosage: MORNING DOSE: 11.0 CONTINUOUS DOSE: 2.4
     Route: 050
  2. DUODOPA [Suspect]
     Active Substance: CARBIDOPA\LEVODOPA
     Indication: PARKINSON^S DISEASE
     Dosage: MORNING DOSE: 13.0 CONTINUOUS DOSE: 2.7 EXTRA DOSE: 2.0
     Route: 050
     Dates: start: 20100623
  3. DUODOPA [Suspect]
     Active Substance: CARBIDOPA\LEVODOPA
     Dosage: MD 11.0, CD 2.3
     Route: 050

REACTIONS (12)
  - Parkinson^s disease [Not Recovered/Not Resolved]
  - Freezing phenomenon [Not Recovered/Not Resolved]
  - Hallucination [Recovered/Resolved]
  - Urinary incontinence [Not Recovered/Not Resolved]
  - Hyperkinesia [Not Recovered/Not Resolved]
  - General physical health deterioration [Not Recovered/Not Resolved]
  - Balance disorder [Not Recovered/Not Resolved]
  - Salivary hypersecretion [Not Recovered/Not Resolved]
  - Fall [Not Recovered/Not Resolved]
  - Dyschezia [Not Recovered/Not Resolved]
  - Stoma site reaction [Recovered/Resolved]
  - Dyskinesia [Not Recovered/Not Resolved]
